FAERS Safety Report 6284357-5 (Version None)
Quarter: 2009Q3

REPORT INFORMATION
  Report Type: 
  Country: None (occurrence: None)
  Receive Date: 20090723
  Receipt Date: 20090713
  Transmission Date: 20100115
  Serious: Yes (Hospitalization, Other)
  Sender: FDA-Public Use
  Company Number: 231725K08USA

PATIENT
  Age: 36 Year
  Sex: Female

DRUGS (6)
  1. REBIF [Suspect]
     Indication: MULTIPLE SCLEROSIS
     Dosage: 3 IN 1 WEEKS
     Dates: start: 20070701, end: 20080401
  2. ALCOHOL (ETHANOL) [Suspect]
  3. NYQUIL (MEDINITE) [Suspect]
  4. ZOLOFT [Suspect]
     Dates: start: 20080301, end: 20080401
  5. PAIN PILLS (ALL OTHER THERAPEUTIC PRODUCTS) [Suspect]
  6. UNSPECIFIED PILLS (ALL OTHER THERAPEUTIC PRODUCTS) [Suspect]

REACTIONS (4)
  - DEPRESSION [None]
  - INTENTIONAL SELF-INJURY [None]
  - SUICIDAL IDEATION [None]
  - SUICIDE ATTEMPT [None]
